FAERS Safety Report 6025188-0 (Version None)
Quarter: 2008Q4

REPORT INFORMATION
  Report Type: 
  Country: None (occurrence: None)
  Receive Date: 20081229
  Receipt Date: 20081218
  Transmission Date: 20090506
  Serious: Yes (Hospitalization, Other)
  Sender: FDA-Public Use
  Company Number: DSA_32674_2008

PATIENT
  Sex: Male

DRUGS (8)
  1. LORAZEPAM [Suspect]
     Indication: DRUG USE FOR UNKNOWN INDICATION
     Dosage: 2.5 MG QD, ORAL, (2M QD, ORAL, (1.75 MG, QD, ORAL), (1.5 MG, QD, )
     Route: 048
     Dates: start: 20080301, end: 20080624
  2. LORAZEPAM [Suspect]
     Indication: DRUG USE FOR UNKNOWN INDICATION
     Dosage: 2.5 MG QD, ORAL, (2M QD, ORAL, (1.75 MG, QD, ORAL), (1.5 MG, QD, )
     Route: 048
     Dates: start: 20080625, end: 20080630
  3. LORAZEPAM [Suspect]
     Indication: DRUG USE FOR UNKNOWN INDICATION
     Dosage: 2.5 MG QD, ORAL, (2M QD, ORAL, (1.75 MG, QD, ORAL), (1.5 MG, QD, )
     Route: 048
     Dates: start: 20080701, end: 20080704
  4. LORAZEPAM [Suspect]
     Indication: DRUG USE FOR UNKNOWN INDICATION
     Dosage: 2.5 MG QD, ORAL, (2M QD, ORAL, (1.75 MG, QD, ORAL), (1.5 MG, QD, )
     Route: 048
     Dates: start: 20080705, end: 20080721
  5. DOMINAL /00018902) (DOMINAL - PROTHIPENDYL HYDROCHLORIDE) (NOT SPECIFI [Suspect]
     Indication: DRUG USE FOR UNKNOWN INDICATION
     Dosage: 40 MG QD; ORAL
     Route: 048
     Dates: start: 20080711
  6. VENLAFAXINE HYDROCHLORIDE [Suspect]
     Indication: DEPRESSION
     Dosage: 75 MG, QD; ORAL, (150 MG, ORAL)
     Route: 048
     Dates: start: 20080625, end: 20080630
  7. VENLAFAXINE HYDROCHLORIDE [Suspect]
     Indication: DEPRESSION
     Dosage: 75 MG, QD; ORAL, (150 MG, ORAL)
     Route: 048
     Dates: start: 20080701
  8. ACETYLSALICYLIC ACID [Concomitant]

REACTIONS (12)
  - CONCUSSION [None]
  - DIZZINESS [None]
  - DRUG DEPENDENCE [None]
  - DRUG EFFECT INCREASED [None]
  - DRUG INTERACTION [None]
  - FACIAL BONES FRACTURE [None]
  - FALL [None]
  - FEELING ABNORMAL [None]
  - LOSS OF CONSCIOUSNESS [None]
  - MYOCARDIAL INFARCTION [None]
  - SINUS ARRHYTHMIA [None]
  - SYNCOPE [None]
